FAERS Safety Report 13532569 (Version 2)
Quarter: 2017Q3

REPORT INFORMATION
  Report Type: Spontaneous
  Country: US (occurrence: US)
  Receive Date: 20170510
  Receipt Date: 20170810
  Transmission Date: 20171127
  Serious: Yes (Other)
  Sender: FDA-Public Use
  Company Number: US-SAOL THERAPEUTICS-2017SAO00455

PATIENT
  Age: 44 Year
  Sex: Female

DRUGS (4)
  1. COMPOUNDED BACLOFEN [Suspect]
     Active Substance: BACLOFEN
     Indication: MUSCLE SPASTICITY
     Dosage: 50.05 MG, \DAY
     Route: 037
     Dates: start: 20170220, end: 20170306
  2. BACLOFEN. [Suspect]
     Active Substance: BACLOFEN
  3. COMPOUNDED BACLOFEN [Suspect]
     Active Substance: BACLOFEN
     Dosage: 0.62 MG, \DAY
     Route: 037
  4. COMPOUNDED BACLOFEN [Suspect]
     Active Substance: BACLOFEN
     Dosage: 50 ?G, \DAY
     Route: 037
     Dates: end: 20170306

REACTIONS (21)
  - Headache [Recovered/Resolved]
  - Implant site dehiscence [Unknown]
  - Implant site pain [Unknown]
  - Nausea [Recovered/Resolved]
  - Altered state of consciousness [Unknown]
  - Pain [Unknown]
  - Hypersensitivity [Unknown]
  - Device dislocation [Unknown]
  - Treatment noncompliance [Unknown]
  - Amnesia [Unknown]
  - Anxiety [Unknown]
  - Implant site erythema [Unknown]
  - Hallucination [Recovered/Resolved]
  - Constipation [Unknown]
  - Implant site swelling [Recovered/Resolved]
  - Cerebrospinal fluid leakage [Unknown]
  - Trismus [Unknown]
  - Therapy non-responder [Unknown]
  - Irritability [Unknown]
  - Medical device discomfort [Unknown]
  - Neuropathy peripheral [Unknown]

NARRATIVE: CASE EVENT DATE: 2017
